FAERS Safety Report 4778942-7 (Version None)
Quarter: 2005Q3

REPORT INFORMATION
  Report Type: 
  Country: None (occurrence: None)
  Receive Date: 20050922
  Receipt Date: 20050913
  Transmission Date: 20060218
  Serious: Yes (Other)
  Sender: FDA-Public Use
  Company Number: 2005-09-0668

PATIENT
  Sex: Male

DRUGS (3)
  1. NASONEX [Suspect]
     Dosage: UNKNOWN NASAL SPRAY
     Route: 045
     Dates: start: 20050813
  2. KARDEGIC SACHETS (ACETYLSALICYLATE LYSINE) [Concomitant]
  3. LEXOMIL (BROMAZEPAM) [Concomitant]

REACTIONS (3)
  - AGEUSIA [None]
  - ANOSMIA [None]
  - TONGUE COATED [None]
